FAERS Safety Report 8608924-6 (Version None)
Quarter: 2012Q3

REPORT INFORMATION
  Report Type: 
  Country: None (occurrence: None)
  Receive Date: 20120821
  Receipt Date: 20120806
  Transmission Date: 20120928
  Serious: Yes (Other)
  Sender: FDA-Public Use
  Company Number: GB-ROCHE-1098509

PATIENT
  Sex: Male

DRUGS (1)
  1. ISOTRETINOIN [Suspect]
     Indication: PRODUCT USED FOR UNKNOWN INDICATION

REACTIONS (11)
  - DEPRESSION [None]
  - SUICIDAL IDEATION [None]
  - ALOPECIA [None]
  - LIP DRY [None]
  - DRY MOUTH [None]
  - NASAL DRYNESS [None]
  - SUICIDE ATTEMPT [None]
  - PSYCHOTIC DISORDER [None]
  - DRY EYE [None]
  - ANXIETY [None]
  - ARTHRALGIA [None]
